FAERS Safety Report 9887915 (Version 1)
Quarter: 2014Q1

REPORT INFORMATION
  Report Type: Spontaneous
  Country: US (occurrence: None)
  Receive Date: 20140207
  Receipt Date: 20140207
  Transmission Date: 20141002
  Serious: Yes (Hospitalization)
  Sender: FDA-Public Use
  Company Number: None

PATIENT
  Age: 62 Year
  Sex: Male
  Weight: 91.1 kg

DRUGS (2)
  1. WARFARIN [Suspect]
     Indication: ATRIAL FIBRILLATION
     Route: 048
     Dates: start: 20121017, end: 20121213
  2. WARFARIN [Suspect]
     Indication: STENT PLACEMENT
     Route: 048
     Dates: start: 20121017, end: 20121213

REACTIONS (1)
  - Gastrointestinal haemorrhage [None]
